FAERS Safety Report 7126869-8 (Version None)
Quarter: 2010Q4

REPORT INFORMATION
  Report Type: 
  Country: None (occurrence: None)
  Receive Date: 20101129
  Receipt Date: 20101115
  Transmission Date: 20110411
  Serious: Yes (Hospitalization)
  Sender: FDA-Public Use
  Company Number: FR-AMGEN INC.-KDC438551

PATIENT
  Sex: Male

DRUGS (5)
  1. DENOSUMAB [Suspect]
     Indication: METASTASES TO BONE
     Dosage: 1.7 ML, QMO
     Route: 058
     Dates: start: 20100323
  2. DARBEPOETIN ALFA [Suspect]
     Dosage: 500 A?G, UNK
     Route: 058
     Dates: start: 20100903, end: 20100903
  3. ACETYLSALICYLATE LYSINE [Suspect]
     Dosage: 160 MG, QD
     Route: 048
     Dates: start: 20100823, end: 20100905
  4. ACETYLSALICYLIC ACID [Suspect]
     Dosage: 160 MG, UNK
  5. LEUPRORELIN [Concomitant]
     Dosage: 11.25 MG, UNK
     Route: 058
     Dates: start: 20100903

REACTIONS (1)
  - HAEMATURIA [None]
